FAERS Safety Report 17849718 (Version 1)
Quarter: 2020Q2

REPORT INFORMATION
  Report Type: Spontaneous
  Country: US (occurrence: US)
  Receive Date: 20200602
  Receipt Date: 20200602
  Transmission Date: 20200714
  Serious: No
  Sender: FDA-Public Use
  Company Number: US-PFIZER INC-2020214509

PATIENT
  Age: 83 Year
  Sex: Female
  Weight: 62.6 kg

DRUGS (1)
  1. LATANOPROST. [Suspect]
     Active Substance: LATANOPROST
     Indication: CATARACT OPERATION
     Dosage: 1 DROP ONCE A DAY IN EACH EYE
     Dates: start: 202005

REACTIONS (5)
  - Skin discolouration [Not Recovered/Not Resolved]
  - Madarosis [Not Recovered/Not Resolved]
  - Off label use [Unknown]
  - Product use in unapproved indication [Unknown]
  - Eyelash discolouration [Not Recovered/Not Resolved]

NARRATIVE: CASE EVENT DATE: 202005
